FAERS Safety Report 8352058-5 (Version None)
Quarter: 2012Q2

REPORT INFORMATION
  Report Type: 
  Country: None (occurrence: None)
  Receive Date: 20120511
  Receipt Date: 20120501
  Transmission Date: 20120825
  Serious: Yes (Other)
  Sender: FDA-Public Use
  Company Number: JP-VERTEX PHARMACEUTICALS INC.-AE-2012-006306

PATIENT
  Age: 60 Year
  Sex: Male

DRUGS (19)
  1. PEG-INTRON [Concomitant]
     Route: 058
     Dates: start: 20120201, end: 20120208
  2. PEG-INTRON [Concomitant]
     Route: 058
     Dates: start: 20120222, end: 20120222
  3. RIBAVIRIN [Concomitant]
     Route: 048
     Dates: start: 20120215, end: 20120306
  4. PEG-INTRON [Concomitant]
     Route: 058
     Dates: start: 20120215, end: 20120215
  5. RIBAVIRIN [Concomitant]
     Indication: HEPATITIS C
     Route: 048
     Dates: start: 20120125, end: 20120129
  6. RIBAVIRIN [Concomitant]
     Route: 048
     Dates: start: 20120206, end: 20120214
  7. ALLOPURINOL [Concomitant]
     Route: 048
  8. RIBAVIRIN [Concomitant]
     Route: 048
     Dates: start: 20120314, end: 20120403
  9. RIBAVIRIN [Concomitant]
     Route: 048
     Dates: start: 20120130, end: 20120205
  10. RIBAVIRIN [Concomitant]
     Route: 048
     Dates: start: 20120307
  11. PEG-INTRON [Concomitant]
     Route: 058
     Dates: start: 20120321
  12. AMARYL [Concomitant]
     Route: 048
  13. PEG-INTRON [Concomitant]
     Indication: HEPATITIS C
     Route: 058
     Dates: start: 20120125, end: 20120125
  14. PEG-INTRON [Concomitant]
     Route: 058
     Dates: start: 20120229, end: 20120314
  15. RIBAVIRIN [Concomitant]
     Route: 048
     Dates: start: 20120404
  16. METFORMIN HCL [Concomitant]
     Route: 048
  17. TELAVIC (TELAPREVIR) [Suspect]
     Indication: HEPATITIS C
     Route: 048
     Dates: start: 20120125, end: 20120417
  18. JANUVIA [Concomitant]
     Route: 048
  19. OMEPRAZOLE [Concomitant]
     Route: 048
     Dates: start: 20120125

REACTIONS (1)
  - NEUTROPHIL COUNT DECREASED [None]
